FAERS Safety Report 7544965-8 (Version None)
Quarter: 2011Q2

REPORT INFORMATION
  Report Type: 
  Country: None (occurrence: None)
  Receive Date: 20110614
  Receipt Date: 20090309
  Transmission Date: 20111010
  Serious: Yes (Death, Other)
  Sender: FDA-Public Use
  Company Number: US-BAYER-200914705NA

PATIENT
  Age: 70 Year
  Sex: Male
  Weight: 119 kg

DRUGS (9)
  1. ACETYLSALICYLIC ACID SRT [Concomitant]
     Dosage: 81 MG DAY
     Route: 048
  2. LASIX [Concomitant]
     Dosage: 20 MG DAY
     Route: 048
  3. LOPRESSOR [Concomitant]
     Dosage: 50 MG TWICE DAY
     Route: 048
  4. ZOCOR [Concomitant]
     Dosage: 20 MG DAY
     Route: 048
  5. HEPARIN [Concomitant]
     Dosage: UNK
     Dates: start: 20070326, end: 20070326
  6. DIOVAN [Concomitant]
     Dosage: 160 MG DAY
     Route: 048
  7. GLUCOPHAGE [Concomitant]
     Dosage: 500 MG TWICE DAY
     Route: 048
  8. MAXZIDE [Concomitant]
     Dosage: 75/50 MG DAY
     Route: 048
  9. TRASYLOL [Suspect]
     Indication: CORONARY ARTERY BYPASS
     Dosage: UNK
     Route: 042
     Dates: start: 20070326, end: 20070326

REACTIONS (11)
  - ANXIETY [None]
  - UNEVALUABLE EVENT [None]
  - STRESS [None]
  - ANHEDONIA [None]
  - FEAR [None]
  - EMOTIONAL DISTRESS [None]
  - PAIN [None]
  - INJURY [None]
  - DEATH [None]
  - RENAL FAILURE [None]
  - RENAL INJURY [None]
